FAERS Safety Report 24040368 (Version 3)
Quarter: 2024Q3

REPORT INFORMATION
  Report Type: Spontaneous
  Country: BR (occurrence: BR)
  Receive Date: 20240702
  Receipt Date: 20240720
  Transmission Date: 20241016
  Serious: Yes (Other)
  Sender: BAXTER
  Company Number: BR-BAXTER-2024BAX020719

PATIENT
  Age: 32 Year
  Sex: Female
  Weight: 63.8 kg

DRUGS (2)
  1. IRON [Suspect]
     Active Substance: IRON
     Indication: Serum ferritin decreased
     Dosage: 2 AMPOULES DILUTED IN 500 ML OF SODIUM CHLORIDE 0.9% BY INFUSION OVER A PERIOD OF 4 HOURS (MANUFACTU
     Route: 042
     Dates: start: 20240515, end: 20240515
  2. SODIUM CHLORIDE [Suspect]
     Active Substance: SODIUM CHLORIDE
     Indication: Medication dilution
     Dosage: 500 ML OF 0.9% SODIUM CHLORIDE USED TO DILUTE 2 AMPOULES OF SUCROFER BY INFUSION OVER A PERIOD OF 4
     Route: 042
     Dates: start: 20240515, end: 20240515

REACTIONS (5)
  - Musculoskeletal stiffness [Unknown]
  - Nausea [Recovered/Resolved]
  - Oedema peripheral [Recovered/Resolved]
  - Erythema [Recovered/Resolved]
  - Exposure during pregnancy [Unknown]

NARRATIVE: CASE EVENT DATE: 20240515
